FAERS Safety Report 8534845-3 (Version None)
Quarter: 2012Q3

REPORT INFORMATION
  Report Type: 
  Country: None (occurrence: None)
  Receive Date: 20120724
  Receipt Date: 20120710
  Transmission Date: 20120928
  Serious: Yes (Hospitalization, Other)
  Sender: FDA-Public Use
  Company Number: FR-WATSON-2012-12441

PATIENT
  Sex: Male

DRUGS (2)
  1. ENALAPRIL MALEATE [Suspect]
     Indication: PRODUCT USED FOR UNKNOWN INDICATION
     Dosage: 5 MG, UNKNOWN
     Route: 048
  2. LAMICTAL [Concomitant]
     Indication: EPILEPSY
     Dosage: UNK
     Route: 065

REACTIONS (7)
  - PYREXIA [None]
  - HEADACHE [None]
  - HYPOTENSION [None]
  - EXPIRED DRUG ADMINISTERED [None]
  - TYMPANIC MEMBRANE HYPERAEMIA [None]
  - GENERAL PHYSICAL HEALTH DETERIORATION [None]
  - EPILEPSY [None]
